FAERS Safety Report 11697874 (Version 1)
Quarter: 2015Q4

REPORT INFORMATION
  Report Type: Spontaneous
  Country: US (occurrence: US)
  Receive Date: 20151104
  Receipt Date: 20151104
  Transmission Date: 20160304
  Serious: No
  Sender: FDA-Public Use
  Company Number: US-ELI_LILLY_AND_COMPANY-US201012002048

PATIENT
  Sex: Female

DRUGS (1)
  1. FORTEO [Suspect]
     Active Substance: TERIPARATIDE
     Indication: OSTEOPOROSIS
     Dosage: 20 UG, DAILY (1/D)
     Dates: start: 20101107

REACTIONS (9)
  - Arteriosclerosis coronary artery [Unknown]
  - Insomnia [Unknown]
  - Heart rate increased [Unknown]
  - Head discomfort [Unknown]
  - Dyspnoea [Unknown]
  - Psychomotor hyperactivity [Unknown]
  - Hypopnoea [Unknown]
  - Chest discomfort [Unknown]
  - Flushing [Unknown]
